FAERS Safety Report 5825673-8 (Version None)
Quarter: 2008Q3

REPORT INFORMATION
  Report Type: 
  Country: None (occurrence: None)
  Receive Date: 20080729
  Receipt Date: 20080718
  Transmission Date: 20090109
  Serious: Yes (Congenital Anomaly, Other)
  Sender: FDA-Public Use
  Company Number: US-ROCHE-573843

PATIENT
  Weight: 1.5 kg

DRUGS (5)
  1. MYCOPHENOLATE MOFETIL [Suspect]
     Route: 064
  2. TACROLIMUS [Suspect]
     Route: 064
  3. PREDNISONE [Suspect]
     Route: 064
  4. RAPAMUNE [Suspect]
     Route: 064
  5. THYMOGLOBULIN [Suspect]
     Route: 064

REACTIONS (3)
  - CLEFT LIP AND PALATE [None]
  - MICROTIA [None]
  - PREMATURE BABY [None]
